FAERS Safety Report 5470309-1 (Version None)
Quarter: 2007Q4

REPORT INFORMATION
  Report Type: 
  Country: None (occurrence: None)
  Receive Date: 20070924
  Receipt Date: 20070913
  Transmission Date: 20080405
  Serious: Yes (Other)
  Sender: FDA-Public Use
  Company Number: 2007BI015602

PATIENT
  Age: 73 Year
  Sex: Male

DRUGS (3)
  1. ZEVALIN [Suspect]
     Indication: DIFFUSE LARGE B-CELL LYMPHOMA
     Dates: start: 20070101, end: 20070101
  2. ZEVALIN [Suspect]
     Indication: DIFFUSE LARGE B-CELL LYMPHOMA
     Dates: start: 20070601, end: 20070601
  3. RITUXIMAB [Concomitant]

REACTIONS (1)
  - MYCOSIS FUNGOIDES [None]
